FAERS Safety Report 6580721-5 (Version None)
Quarter: 2010Q1

REPORT INFORMATION
  Report Type: 
  Country: None (occurrence: None)
  Receive Date: 20100212
  Receipt Date: 20100203
  Transmission Date: 20100710
  Serious: Yes (Hospitalization)
  Sender: FDA-Public Use
  Company Number: DE-MERCK-1002DEU00026

PATIENT
  Age: 13 Month
  Sex: Male
  Weight: 12 kg

DRUGS (5)
  1. SINGULAIR [Suspect]
     Route: 048
     Dates: start: 20091201, end: 20100118
  2. ALBUTEROL [Concomitant]
     Indication: OBSTRUCTIVE AIRWAYS DISORDER
     Route: 065
  3. ATROVENT [Concomitant]
     Indication: OBSTRUCTIVE AIRWAYS DISORDER
     Route: 065
  4. THYME [Concomitant]
     Route: 065
  5. IBUPROFEN [Concomitant]
     Route: 065

REACTIONS (5)
  - BLOOD ALKALINE PHOSPHATASE INCREASED [None]
  - BLOOD LACTATE DEHYDROGENASE INCREASED [None]
  - GAMMA-GLUTAMYLTRANSFERASE INCREASED [None]
  - SMOOTH MUSCLE ANTIBODY POSITIVE [None]
  - TRANSAMINASES INCREASED [None]
